FAERS Safety Report 9699034 (Version 2)
Quarter: 2013Q4

REPORT INFORMATION
  Report Type: Report from Study
  Country: US (occurrence: US)
  Receive Date: 20131120
  Receipt Date: 20131129
  Transmission Date: 20140711
  Serious: Yes (Hospitalization)
  Sender: FDA-Public Use
  Company Number: US-ACTELION-A-US2013-91473

PATIENT
  Age: 50 Year
  Sex: Male

DRUGS (11)
  1. VENTAVIS [Suspect]
     Indication: PORTOPULMONARY HYPERTENSION
     Dosage: 5 MCG, Q2HRS, 6X/DAY
     Route: 055
     Dates: start: 20130919
  2. TRACLEER [Concomitant]
     Indication: PORTOPULMONARY HYPERTENSION
     Dosage: 125 MG, UNK
     Route: 048
     Dates: start: 20130501
  3. LACTULOSE [Concomitant]
     Dosage: 20 MG, BID
  4. LASIX [Concomitant]
     Dosage: 80 MG, QD
  5. ADVAIR [Concomitant]
     Dosage: UNK, BID
  6. OMEPRAZOLE [Concomitant]
     Dosage: 20 MG, QD, QW
  7. SPIRONOLACTONE [Concomitant]
     Dosage: 200 MG, QD
  8. ALLOPURINOL [Concomitant]
     Dosage: 100 MG, BID
  9. ALBUTEROL [Concomitant]
  10. L-THYROXINE [Concomitant]
  11. XIFAXAN [Concomitant]
     Dosage: 550 MG, BID

REACTIONS (7)
  - Viral infection [Recovering/Resolving]
  - Nausea [Recovering/Resolving]
  - Pyrexia [Recovering/Resolving]
  - Haemoglobin decreased [Recovering/Resolving]
  - Haematocrit decreased [Recovering/Resolving]
  - Transfusion [Recovering/Resolving]
  - Vomiting [Recovering/Resolving]
